FAERS Safety Report 5455143-0 (Version None)
Quarter: 2007Q3

REPORT INFORMATION
  Report Type: 
  Country: None (occurrence: None)
  Receive Date: 20070914
  Receipt Date: 20070903
  Transmission Date: 20080115
  Serious: Yes (Other)
  Sender: FDA-Public Use
  Company Number: GXKR2007CA07673

PATIENT
  Age: 12 Year
  Sex: Female

DRUGS (1)
  1. TRIAMCINOLONE [Suspect]
     Indication: JUVENILE ARTHRITIS
     Dosage: INTRA-ARTICULAR
     Route: 014

REACTIONS (1)
  - EXTRASKELETAL OSSIFICATION [None]
